FAERS Safety Report 18440657 (Version 1)
Quarter: 2020Q4

REPORT INFORMATION
  Report Type: Spontaneous
  Country: US (occurrence: US)
  Receive Date: 20201029
  Receipt Date: 20201029
  Transmission Date: 20210114
  Serious: No
  Sender: FDA-Public Use
  Company Number: US-MYLANLABS-2020M1089009

PATIENT
  Sex: Female

DRUGS (1)
  1. PROCTOFOAM HC [Suspect]
     Active Substance: HYDROCORTISONE ACETATE\PRAMOXINE HYDROCHLORIDE
     Indication: DERMATOSIS
     Dosage: 1 PERCENT
     Route: 054

REACTIONS (2)
  - Off label use [Not Recovered/Not Resolved]
  - Device difficult to use [Not Recovered/Not Resolved]
